FAERS Safety Report 4837545-6 (Version None)
Quarter: 2005Q4

REPORT INFORMATION
  Report Type: 
  Country: None (occurrence: None)
  Receive Date: 20051123
  Receipt Date: 20051123
  Transmission Date: 20060501
  Serious: Yes (Hospitalization)
  Sender: FDA-Public Use
  Company Number: None

PATIENT
  Age: 59 Year
  Sex: Male
  Weight: 146.5 kg

DRUGS (11)
  1. WARFARIN SODIUM [Suspect]
     Indication: ATRIAL FIBRILLATION
     Dosage: ORAL
     Route: 048
  2. SIMVASTATIN [Concomitant]
  3. AMIODARONE HCL (SANDOZ) [Concomitant]
  4. ATENOLOL [Concomitant]
  5. TRIAMCINOLONE ACETONIDE [Concomitant]
  6. LORATADINE [Concomitant]
  7. SYNTHROID [Concomitant]
  8. SILDENAFIL CITRATE [Concomitant]
  9. LISINOPRIL [Concomitant]
  10. ALBUTEROL / IPRATROP [Concomitant]
  11. LACTASE [Concomitant]

REACTIONS (1)
  - HAEMORRHAGE [None]
